FAERS Safety Report 6337088-7 (Version None)
Quarter: 2009Q3

REPORT INFORMATION
  Report Type: 
  Country: None (occurrence: None)
  Receive Date: 20090831
  Receipt Date: 20090819
  Transmission Date: 20100115
  Serious: Yes (Death, Hospitalization)
  Sender: FDA-Public Use
  Company Number: 2009PL000242

PATIENT
  Age: 53 Year
  Sex: Female
  Weight: 58.9676 kg

DRUGS (1)
  1. LOTRONEX [Suspect]
     Dosage: 1 MG; QD
     Dates: start: 20081227, end: 20090401

REACTIONS (3)
  - DISEASE COMPLICATION [None]
  - HAEMATEMESIS [None]
  - HEPATIC CIRRHOSIS [None]
